FAERS Safety Report 7919673-1 (Version None)
Quarter: 2011Q4

REPORT INFORMATION
  Report Type: 
  Country: None (occurrence: None)
  Receive Date: 20111115
  Receipt Date: 20111031
  Transmission Date: 20120403
  Serious: Yes (Hospitalization)
  Sender: FDA-Public Use
  Company Number: 2011-3891

PATIENT
  Age: 16 Year
  Sex: Male
  Weight: 33 kg

DRUGS (17)
  1. MOMETASONE FUROATE [Concomitant]
  2. PANCREASE (PANCREATIN) [Concomitant]
  3. MORPHINE [Concomitant]
  4. POLYETHYLENE GLYCOL [Concomitant]
  5. URICOL (ALL OTHE RTERAPEUTIC PRODUCTS) [Concomitant]
  6. CYPROHEPTADINE HCL [Concomitant]
  7. DORNASE (DORNASE ALFA) [Concomitant]
  8. HYPERSAL (ALL OTHER THERAPEUTIC PRODUCTS) [Concomitant]
  9. INCRELEX (MECASERMIN) (MECASERMIN) (MECASERMIN) [Suspect]
     Indication: INSULIN-LIKE GROWTH FACTOR DECREASED
     Dosage: 82 UNITS (41 UNITS, 2 IN 1 D), SUBCUTANEOUS
     Route: 058
     Dates: start: 20110317
  10. INSULIN [Concomitant]
  11. LANSOPRAZOLE [Concomitant]
  12. AZITHROMYCIN [Concomitant]
  13. GABAPENTIN [Concomitant]
  14. CELEBREX [Concomitant]
  15. LEVEMIR [Concomitant]
  16. PHYTONADIONE [Concomitant]
  17. ALBUTEROL [Concomitant]

REACTIONS (3)
  - CONDITION AGGRAVATED [None]
  - HEPATIC CIRRHOSIS [None]
  - PLATELET COUNT DECREASED [None]
